FAERS Safety Report 5208966-7 (Version None)
Quarter: 2007Q1

REPORT INFORMATION
  Report Type: 
  Country: None (occurrence: None)
  Receive Date: 20070116
  Receipt Date: 20070110
  Transmission Date: 20070707
  Serious: Yes (Hospitalization)
  Sender: FDA-Public Use
  Company Number: GB-AVENTIS-200620401GDDC

PATIENT
  Age: 82 Year
  Sex: Male

DRUGS (6)
  1. DESMOSPRAY                         /00361901/ [Suspect]
     Indication: DIABETES INSIPIDUS
     Dosage: DOSE UNIT: MILLIGRAM PER MILLILITRE
     Route: 055
     Dates: end: 20060901
  2. AMLODIPINE [Concomitant]
     Indication: HYPERTENSION
     Route: 048
  3. NICORANDIL [Concomitant]
     Indication: ANGINA PECTORIS
     Route: 048
  4. BISOPROLOL FUMARATE [Concomitant]
     Indication: HYPERTENSION
     Route: 048
  5. LANSOPRAZOLE [Concomitant]
     Route: 048
  6. CLOPIDOGREL [Concomitant]
     Route: 048

REACTIONS (2)
  - CIRCULATORY COLLAPSE [None]
  - HYPONATRAEMIA [None]
